FAERS Safety Report 9256982 (Version 1)
Quarter: 2013Q2

REPORT INFORMATION
  Report Type: Spontaneous
  Country: US (occurrence: None)
  Receive Date: 20130424
  Receipt Date: 20130424
  Transmission Date: 20140414
  Serious: Yes (Death)
  Sender: FDA-Public Use
  Company Number: None

PATIENT
  Age: 58 Year
  Sex: Female
  Weight: 51.7 kg

DRUGS (12)
  1. AXL1717 [Suspect]
     Indication: GLIOBLASTOMA
     Route: 048
     Dates: start: 20130220, end: 20130413
  2. ALBUTEROL\IPRATROPIUM [Concomitant]
  3. FILGRASTIM [Concomitant]
  4. HYDROCORTISONE [Concomitant]
  5. LACOSAMIDE [Concomitant]
  6. LANSOPRAZOLE [Concomitant]
  7. LEVETIRACETUM [Concomitant]
  8. PIPERACILLIN-TAZOBACTAM [Concomitant]
  9. RIFAXMIR [Concomitant]
  10. ZINC SULFATE [Concomitant]
  11. DOBUTAMINE [Concomitant]
  12. SODIUM CHOLORIDE [Concomitant]

REACTIONS (11)
  - Sepsis [None]
  - Renal failure acute [None]
  - Agitation [None]
  - Ischaemic hepatitis [None]
  - Hypotension [None]
  - Blood culture positive [None]
  - Bacterial test positive [None]
  - White blood cell count decreased [None]
  - Platelet count decreased [None]
  - Haemoglobin decreased [None]
  - Haematocrit decreased [None]
